FAERS Safety Report 8376305-9 (Version None)
Quarter: 2012Q1

REPORT INFORMATION
  Report Type: 
  Country: None (occurrence: None)
  Receive Date: 20120323
  Receipt Date: 20111209
  Transmission Date: 20120608
  Serious: Yes (Other)
  Sender: FDA-Public Use
  Company Number: 163-21880-11121539

PATIENT
  Age: 73 Year
  Sex: Male

DRUGS (1)
  1. REVLIMID [Suspect]
     Indication: MYELODYSPLASTIC SYNDROME
     Dosage: 25 MG, 1 IN 1 D, PO
     Route: 048
     Dates: start: 20111001

REACTIONS (6)
  - RASH PRURITIC [None]
  - FATIGUE [None]
  - DIARRHOEA [None]
  - RENAL IMPAIRMENT [None]
  - NAUSEA [None]
  - LACRIMATION INCREASED [None]
